FAERS Safety Report 21495112 (Version 1)
Quarter: 2022Q4

REPORT INFORMATION
  Report Type: Spontaneous
  Country: IN (occurrence: IN)
  Receive Date: 20221022
  Receipt Date: 20221022
  Transmission Date: 20230113
  Serious: Yes (Other)
  Sender: FDA-Public Use
  Company Number: IN-ABBOTT-2022A-1354337

PATIENT
  Age: 75 Year
  Sex: Female

DRUGS (1)
  1. LEVOTHYROXINE [Suspect]
     Active Substance: LEVOTHYROXINE
     Indication: Product used for unknown indication
     Route: 048

REACTIONS (4)
  - Thyroid hormones increased [Unknown]
  - Counterfeit product administered [Unknown]
  - Product quality issue [Unknown]
  - Blood potassium increased [Unknown]
